FAERS Safety Report 8110550-2 (Version None)
Quarter: 2012Q1

REPORT INFORMATION
  Report Type: 
  Country: None (occurrence: None)
  Receive Date: 20120203
  Receipt Date: 20120124
  Transmission Date: 20120608
  Serious: Yes (Hospitalization)
  Sender: FDA-Public Use
  Company Number: FR-BIOGENIDEC-2012BI003300

PATIENT
  Age: 50 Year
  Sex: Female

DRUGS (5)
  1. STRESAM [Concomitant]
     Indication: ANXIOLYTIC THERAPY
     Dates: start: 20100201
  2. CLONAZEPAM [Concomitant]
     Indication: MUSCLE RELAXANT THERAPY
     Dates: start: 20070913, end: 20111201
  3. PRAXINOR [Concomitant]
     Indication: VEIN DISORDER
     Dates: start: 20090301
  4. TYSABRI [Suspect]
     Indication: MULTIPLE SCLEROSIS
     Route: 042
     Dates: start: 20070920
  5. IXEL [Concomitant]
     Indication: ANTIDEPRESSANT THERAPY
     Dates: start: 20111101

REACTIONS (1)
  - EPILEPSY [None]
